FAERS Safety Report 23377293 (Version 1)
Quarter: 2024Q1

REPORT INFORMATION
  Report Type: Spontaneous
  Country: US (occurrence: US)
  Receive Date: 20240108
  Receipt Date: 20240108
  Transmission Date: 20240409
  Serious: No
  Sender: FDA-Public Use
  Company Number: US-MYLANLABS-2024M1000451

PATIENT
  Sex: Female
  Weight: 72.57 kg

DRUGS (1)
  1. ESTRADIOL TRANSDERMAL SYSTEM [Suspect]
     Active Substance: ESTRADIOL
     Indication: Hormone replacement therapy
     Dosage: 0.1 MILLIGRAM, QW
     Route: 062

REACTIONS (5)
  - Product adhesion issue [Unknown]
  - Wrong technique in product usage process [Unknown]
  - Headache [Unknown]
  - Illness [Unknown]
  - Lethargy [Unknown]
